FAERS Safety Report 5052798-X (Version None)
Quarter: 2006Q3

REPORT INFORMATION
  Report Type: 
  Country: None (occurrence: None)
  Receive Date: 20060713
  Receipt Date: 20060713
  Transmission Date: 20061208
  Serious: Yes (Hospitalization)
  Sender: FDA-Public Use
  Company Number: None

PATIENT
  Age: 77 Year
  Sex: Female
  Weight: 78.0187 kg

DRUGS (1)
  1. ERBITUX [Suspect]
     Indication: LUNG NEOPLASM MALIGNANT
     Dosage: 458 MG WEKLY X 4 IV DRIP
     Route: 041
     Dates: start: 20060531, end: 20060614

REACTIONS (8)
  - CAROTID ARTERY DISEASE [None]
  - CEREBRAL ATROPHY [None]
  - CEREBRAL ISCHAEMIA [None]
  - CEREBROVASCULAR ACCIDENT [None]
  - DYSPHAGIA [None]
  - EJECTION FRACTION DECREASED [None]
  - EMBOLIC CEREBRAL INFARCTION [None]
  - TRANSIENT ISCHAEMIC ATTACK [None]
